FAERS Safety Report 7861722-3 (Version None)
Quarter: 2011Q4

REPORT INFORMATION
  Report Type: 
  Country: None (occurrence: None)
  Receive Date: 20111027
  Receipt Date: 20111024
  Transmission Date: 20120403
  Serious: Yes (Hospitalization)
  Sender: FDA-Public Use
  Company Number: JP-MERCK-1110USA04061

PATIENT
  Age: 70 Year
  Sex: Male

DRUGS (5)
  1. NORVASC [Concomitant]
     Route: 048
  2. METHILEFT [Concomitant]
     Route: 048
  3. JANUVIA [Suspect]
     Route: 048
     Dates: start: 20111001, end: 20111001
  4. RABEPRAZOLE SODIUM [Concomitant]
     Route: 048
  5. JANUVIA [Suspect]
     Route: 048
     Dates: start: 20110801, end: 20111001

REACTIONS (1)
  - PLATELET COUNT DECREASED [None]
